FAERS Safety Report 18041378 (Version 1)
Quarter: 2020Q3

REPORT INFORMATION
  Report Type: Report from Study
  Country: CO (occurrence: CO)
  Receive Date: 20200719
  Receipt Date: 20200719
  Transmission Date: 20201103
  Serious: Yes (Other)
  Sender: FDA-Public Use
  Company Number: PHHY2019CO119139

PATIENT
  Sex: Female

DRUGS (1)
  1. REVOLADE [Suspect]
     Active Substance: ELTROMBOPAG
     Indication: IMMUNE THROMBOCYTOPENIA
     Dosage: 25 MG, QD
     Route: 048
     Dates: start: 20181017

REACTIONS (6)
  - Ecchymosis [Unknown]
  - Disease recurrence [Unknown]
  - Contusion [Unknown]
  - Fatigue [Unknown]
  - Pain in extremity [Unknown]
  - Immune thrombocytopenia [Unknown]
